FAERS Safety Report 23123287 (Version 1)
Quarter: 2023Q4

REPORT INFORMATION
  Report Type: Report from Study
  Country: CA (occurrence: CA)
  Receive Date: 20231030
  Receipt Date: 20231030
  Transmission Date: 20240110
  Serious: Yes (Hospitalization, Other)
  Sender: FDA-Public Use
  Company Number: CA-AMGEN-CANSL2022048231

PATIENT
  Age: 48 Year
  Sex: Female
  Weight: 83.5 kg

DRUGS (2)
  1. AVSOLA [Suspect]
     Active Substance: INFLIXIMAB-AXXQ
     Indication: Crohn^s disease
     Dosage: 500 MILLIGRAM, Q4WK
     Route: 065
     Dates: start: 20220331
  2. AVSOLA [Suspect]
     Active Substance: INFLIXIMAB-AXXQ
     Dosage: 500 MILLIGRAM, Q4WK
     Route: 065
     Dates: start: 20220331

REACTIONS (4)
  - Anal fistula [Unknown]
  - Anal abscess [Not Recovered/Not Resolved]
  - Off label use [Unknown]
  - Procedural pain [Unknown]
